FAERS Safety Report 5288507-9 (Version None)
Quarter: 2007Q2

REPORT INFORMATION
  Report Type: 
  Country: None (occurrence: None)
  Receive Date: 20070405
  Receipt Date: 20070403
  Transmission Date: 20071010
  Serious: Yes (Hospitalization)
  Sender: FDA-Public Use
  Company Number: FRWYE324403APR07

PATIENT
  Age: 18 Year
  Sex: Female
  Weight: 57 kg

DRUGS (1)
  1. MICROVAL [Suspect]
     Indication: CONTRACEPTION
     Route: 048
     Dates: start: 20061226, end: 20070220

REACTIONS (1)
  - BENIGN INTRACRANIAL HYPERTENSION [None]
